FAERS Safety Report 5818323-8 (Version None)
Quarter: 2008Q3

REPORT INFORMATION
  Report Type: 
  Country: None (occurrence: None)
  Receive Date: 20080716
  Receipt Date: 20061207
  Transmission Date: 20090109
  Serious: Yes (Death)
  Sender: FDA-Public Use
  Company Number: MK-6028246

PATIENT
  Age: 41 Year
  Sex: Male

DRUGS (6)
  1. CITALOPRAM HYDROBROMIDE [Suspect]
     Indication: ANXIETY
     Dosage: 10 MG; ORAL; 20 MG; ORAL
     Route: 048
     Dates: start: 20061106, end: 20061108
  2. CITALOPRAM HYDROBROMIDE [Suspect]
     Indication: ANXIETY
     Dosage: 10 MG; ORAL; 20 MG; ORAL
     Route: 048
     Dates: start: 20061106
  3. CITALOPRAM HYDROBROMIDE [Suspect]
     Indication: ANXIETY
     Dosage: 10 MG; ORAL; 20 MG; ORAL
     Route: 048
     Dates: start: 20061109
  4. PROCHLORPERAZINE MALEATE [Concomitant]
  5. PROPRANOLOL [Concomitant]
  6. ZOPICLONE (ZOPICLONE) [Concomitant]

REACTIONS (1)
  - COMPLETED SUICIDE [None]
